FAERS Safety Report 6104229-6 (Version None)
Quarter: 2009Q1

REPORT INFORMATION
  Report Type: 
  Country: None (occurrence: None)
  Receive Date: 20090305
  Receipt Date: 20090224
  Transmission Date: 20090719
  Serious: Yes (Death)
  Sender: FDA-Public Use
  Company Number: NL-TEVA-186214ISR

PATIENT
  Age: 87 Year
  Sex: Female

DRUGS (1)
  1. RISPERIDONE [Suspect]

REACTIONS (1)
  - HYPOTHERMIA [None]
